FAERS Safety Report 8765452 (Version 1)
Quarter: 2012Q4

REPORT INFORMATION
  Report Type: 
  Country: US (occurrence: US)
  Receive Date: 20120903
  Receipt Date: 20120903
  Transmission Date: 20130627
  Serious: Yes (Hospitalization)
  Sender: FDA-Public Use
  Company Number: US-PAR PHARMACEUTICAL, INC-2012SCPR004599

PATIENT

DRUGS (10)
  1. LEVETIRACETAM [Suspect]
     Indication: PARTIAL SEIZURES
     Dosage: 500 mg, twice a day
     Route: 065
  2. LEVETIRACETAM [Suspect]
     Dosage: 500 mg, twice a day
     Route: 065
  3. METHIMAZOLE [Concomitant]
     Indication: HYPERTHYROIDISM
     Dosage: 10 mg, twice a day
     Route: 065
  4. ACETAMINOPHEN W/PROPOXYPHENE [Concomitant]
     Indication: PAIN
     Dosage: propoxyphen 100 - acetaminophen 650 mg every 6-8 hours as needed
     Route: 065
  5. ALENDRONATE [Concomitant]
     Indication: PRODUCT USED FOR UNKNOWN INDICATION
     Dosage: 70 mg once/ week
     Route: 065
  6. PANTOPRAZOLE [Concomitant]
     Indication: PRODUCT USED FOR UNKNOWN INDICATION
     Dosage: 40 mg, / day
     Route: 065
  7. INSULIN [Concomitant]
     Indication: PRODUCT USED FOR UNKNOWN INDICATION
     Dosage: sliding-scale dose
     Route: 065
  8. FEXOFENADINE [Concomitant]
     Indication: PRODUCT USED FOR UNKNOWN INDICATION
     Dosage: 60 mg twice/day
     Route: 065
  9. ATENOLOL [Concomitant]
     Indication: PRODUCT USED FOR UNKNOWN INDICATION
     Dosage: 25 mg, / day
     Route: 065
  10. IPRATROPIUM BROMIDE AND ALBUTEROL SULFATE [Concomitant]
     Indication: PRODUCT USED FOR UNKNOWN INDICATION
     Dosage: 2 inhalations every 6 hours as needed
     Route: 065

REACTIONS (1)
  - Acute generalised exanthematous pustulosis [Recovering/Resolving]
